FAERS Safety Report 6678144-3 (Version None)
Quarter: 2010Q2

REPORT INFORMATION
  Report Type: 
  Country: None (occurrence: None)
  Receive Date: 20100409
  Receipt Date: 20100409
  Transmission Date: 20101027
  Serious: Yes (Other)
  Sender: FDA-Public Use
  Company Number: None

PATIENT
  Sex: Female
  Weight: 79.3795 kg

DRUGS (1)
  1. CLONIDINE [Suspect]
     Indication: MALIGNANT HYPERTENSION
     Dosage: TTS #3 Q WEEK
     Dates: start: 20100329, end: 20100330

REACTIONS (1)
  - APPLICATION SITE IRRITATION [None]
